FAERS Safety Report 17886134 (Version 1)
Quarter: 2020Q2

REPORT INFORMATION
  Report Type: Report from Study
  Country: US (occurrence: US)
  Receive Date: 20200611
  Receipt Date: 20200611
  Transmission Date: 20200714
  Serious: No
  Sender: FDA-Public Use
  Company Number: US-JNJFOC-20200606651

PATIENT
  Age: 38 Year
  Sex: Female

DRUGS (4)
  1. STELARA [Suspect]
     Active Substance: USTEKINUMAB
     Indication: PRODUCT USED FOR UNKNOWN INDICATION
     Route: 058
  2. METHOTREXATE. [Suspect]
     Active Substance: METHOTREXATE
     Indication: PRODUCT USED FOR UNKNOWN INDICATION
     Dosage: 6.5 WEEKLY (1 IN 1 WK)
     Route: 065
     Dates: end: 2020
  3. HUMIRA [Suspect]
     Active Substance: ADALIMUMAB
     Indication: PSORIASIS
     Route: 058
     Dates: start: 2018, end: 2019
  4. HUMIRA [Suspect]
     Active Substance: ADALIMUMAB
     Dosage: 80MG/0.8ML(80 MILLIGRAM, SOLUTION FOR INJECTION IN PRE-FILLED PEN)
     Route: 058
     Dates: start: 20200528

REACTIONS (6)
  - Device issue [Unknown]
  - Liver function test increased [Unknown]
  - Burning sensation [Recovered/Resolved]
  - Injection site reaction [Recovered/Resolved]
  - Hypoaesthesia [Recovered/Resolved]
  - Panic attack [Recovered/Resolved]

NARRATIVE: CASE EVENT DATE: 2019
